FAERS Safety Report 7766825-X (Version None)
Quarter: 2011Q3

REPORT INFORMATION
  Report Type: 
  Country: None (occurrence: None)
  Receive Date: 20110922
  Receipt Date: 20110104
  Transmission Date: 20111222
  Serious: No
  Sender: FDA-Public Use
  Company Number: US-ASTRAZENECA-2011SE00778

PATIENT
  Age: 42 Year
  Sex: Female

DRUGS (5)
  1. SOMA [Concomitant]
  2. LORTAB [Concomitant]
  3. SEROQUEL [Suspect]
     Indication: BIPOLAR DISORDER
     Route: 048
     Dates: start: 20090101
  4. SEROQUEL [Suspect]
     Route: 048
     Dates: start: 20090101
  5. XANAX [Concomitant]
     Indication: ANXIETY

REACTIONS (2)
  - DEPRESSION [None]
  - DRUG DOSE OMISSION [None]
